FAERS Safety Report 13695628 (Version 3)
Quarter: 2021Q4

REPORT INFORMATION
  Report Type: Spontaneous
  Country: FR (occurrence: FR)
  Receive Date: 20170627
  Receipt Date: 20211009
  Transmission Date: 20220303
  Serious: Yes (Congenital Anomaly, Other)
  Sender: FDA-Public Use
  Company Number: FR-ABBVIE-17P-056-2020386-00

PATIENT
  Sex: Male
  Weight: 2.94 kg

DRUGS (2)
  1. VALPROATE SODIUM [Suspect]
     Active Substance: VALPROATE SODIUM
     Indication: Maternal exposure timing unspecified
     Route: 064
     Dates: start: 19990610, end: 20000217
  2. VALPROATE SODIUM [Suspect]
     Active Substance: VALPROATE SODIUM
     Route: 064

REACTIONS (31)
  - Mental disorder [Not Recovered/Not Resolved]
  - Dysmorphism [Not Recovered/Not Resolved]
  - Astigmatism [Unknown]
  - Nasopharyngitis [Unknown]
  - Rhinorrhoea [Unknown]
  - Tracheobronchitis [Unknown]
  - Oropharyngeal pain [Unknown]
  - Dysphagia [Unknown]
  - Effusion [Unknown]
  - Abdominal pain upper [Unknown]
  - Regurgitation [Unknown]
  - Visual impairment [Unknown]
  - Coordination abnormal [Unknown]
  - Pyloric stenosis [Unknown]
  - Language disorder [Unknown]
  - Speech disorder [Unknown]
  - Foetal anticonvulsant syndrome [Unknown]
  - Clinodactyly [Unknown]
  - Dyskinesia [Unknown]
  - Speech sound disorder [Unknown]
  - Hypotonia [Unknown]
  - Gastric disorder [Unknown]
  - Lymphadenitis [Not Recovered/Not Resolved]
  - Gastrooesophageal reflux disease [Unknown]
  - Mouth breathing [Unknown]
  - Pharyngitis [Unknown]
  - Bronchitis [Unknown]
  - Nervousness [Unknown]
  - Gastroenteritis [Unknown]
  - Anxiety [Unknown]
  - Foetal exposure during pregnancy [Unknown]
